FAERS Safety Report 20474690 (Version 1)
Quarter: 2022Q1

REPORT INFORMATION
  Report Type: Spontaneous
  Country: RO (occurrence: RO)
  Receive Date: 20220215
  Receipt Date: 20220215
  Transmission Date: 20220423
  Serious: Yes (Hospitalization)
  Sender: FDA-Public Use
  Company Number: RO-MYLANLABS-2022M1012260

PATIENT
  Age: 40 Year
  Sex: Female

DRUGS (15)
  1. DOXORUBICIN [Suspect]
     Active Substance: DOXORUBICIN
     Indication: Chronic lymphocytic leukaemia
     Dosage: R-CHOP REGIMEN
     Route: 065
     Dates: start: 2012
  2. CYCLOPHOSPHAMIDE [Suspect]
     Active Substance: CYCLOPHOSPHAMIDE
     Indication: Chronic lymphocytic leukaemia
     Dosage: R-CHOP REGIMEN
     Route: 065
     Dates: start: 2012
  3. CYCLOPHOSPHAMIDE [Suspect]
     Active Substance: CYCLOPHOSPHAMIDE
     Dosage: FCR REGIMEN
     Route: 065
     Dates: end: 2013
  4. FLUDARABINE [Suspect]
     Active Substance: FLUDARABINE PHOSPHATE
     Indication: Chronic lymphocytic leukaemia
     Dosage: FCR REGIMEN
     Route: 065
     Dates: start: 2012, end: 2013
  5. FLUDARABINE [Suspect]
     Active Substance: FLUDARABINE PHOSPHATE
     Indication: Prophylaxis against graft versus host disease
  6. PREDNISONE [Suspect]
     Active Substance: PREDNISONE
     Indication: Chronic lymphocytic leukaemia
     Dosage: R-CHOP REGIMEN
     Route: 065
     Dates: start: 2012
  7. RITUXIMAB [Suspect]
     Active Substance: RITUXIMAB
     Indication: Chronic lymphocytic leukaemia
     Dosage: R-CHOP REGIMEN
     Route: 065
     Dates: start: 2012
  8. RITUXIMAB [Suspect]
     Active Substance: RITUXIMAB
     Dosage: FCR REGIMEN
     Route: 065
     Dates: end: 2013
  9. RITUXIMAB [Suspect]
     Active Substance: RITUXIMAB
     Dosage: UNK, IN COMBINATION WITH VENETOCLAX
     Route: 065
     Dates: start: 201812, end: 201907
  10. VINCRISTINE [Suspect]
     Active Substance: VINCRISTINE
     Indication: Chronic lymphocytic leukaemia
     Dosage: R-CHOP REGIMEN
     Route: 065
     Dates: start: 2012
  11. IBRUTINIB [Suspect]
     Active Substance: IBRUTINIB
     Indication: Chronic lymphocytic leukaemia
     Dosage: UNK
     Route: 065
     Dates: start: 201611, end: 201806
  12. FLUDARABINE [Concomitant]
     Active Substance: FLUDARABINE PHOSPHATE
     Indication: Prophylaxis against graft versus host disease
     Dosage: 150 MILLIGRAM/SQ. METER, RIC REGIMEN
     Route: 065
     Dates: start: 201601
  13. MELPHALAN [Concomitant]
     Active Substance: MELPHALAN
     Indication: Prophylaxis against graft versus host disease
     Dosage: 140 MILLIGRAM/SQ. METER, RIC REGIMEN
     Route: 065
     Dates: start: 201601
  14. CYCLOSPORINE [Concomitant]
     Active Substance: CYCLOSPORINE
     Indication: Prophylaxis against graft versus host disease
     Dosage: UNK, RIC REGIMEN
     Route: 065
     Dates: start: 201601
  15. MYCOPHENOLATE MOFETIL [Concomitant]
     Active Substance: MYCOPHENOLATE MOFETIL
     Indication: Prophylaxis against graft versus host disease
     Dosage: UNK, RIC REGIMEN
     Route: 065
     Dates: start: 201601

REACTIONS (1)
  - Drug ineffective [Unknown]
